FAERS Safety Report 23748857 (Version 2)
Quarter: 2025Q2

REPORT INFORMATION
  Report Type: Spontaneous
  Country: IT (occurrence: IT)
  Receive Date: 20240416
  Receipt Date: 20250625
  Transmission Date: 20250717
  Serious: Yes (Death, Hospitalization)
  Sender: SANDOZ
  Company Number: IT-GILEAD-2023-0645927

PATIENT
  Age: 74 Year
  Sex: Female

DRUGS (21)
  1. AMBISOME [Suspect]
     Active Substance: AMPHOTERICIN B
     Indication: Disseminated mucormycosis
     Dosage: 10 MG/KG, QD
     Route: 042
     Dates: start: 202007
  2. BENDAMUSTINE [Suspect]
     Active Substance: BENDAMUSTINE
     Indication: Chronic lymphocytic leukaemia
     Route: 065
     Dates: start: 2013
  3. CASPOFUNGIN [Suspect]
     Active Substance: CASPOFUNGIN
     Indication: Evidence based treatment
     Route: 065
     Dates: start: 2020
  4. CYCLOPHOSPHAMIDE [Suspect]
     Active Substance: CYCLOPHOSPHAMIDE
     Indication: Chronic lymphocytic leukaemia
     Route: 065
     Dates: start: 2006
  5. CYCLOPHOSPHAMIDE [Suspect]
     Active Substance: CYCLOPHOSPHAMIDE
     Route: 065
     Dates: start: 2010
  6. FLUCONAZOLE [Suspect]
     Active Substance: FLUCONAZOLE
     Indication: Evidence based treatment
     Route: 065
     Dates: start: 2020, end: 2020
  7. FLUDARABINE [Suspect]
     Active Substance: FLUDARABINE PHOSPHATE
     Indication: Chronic lymphocytic leukaemia
     Route: 065
     Dates: start: 2006
  8. FLUDARABINE [Suspect]
     Active Substance: FLUDARABINE PHOSPHATE
     Route: 065
     Dates: start: 2010
  9. ITRACONAZOLE [Suspect]
     Active Substance: ITRACONAZOLE
     Indication: Disseminated mucormycosis
     Route: 065
     Dates: start: 2020
  10. IBRUTINIB [Suspect]
     Active Substance: IBRUTINIB
     Indication: Chronic lymphocytic leukaemia
     Route: 065
     Dates: start: 2014, end: 2016
  11. IDELALISIB [Suspect]
     Active Substance: IDELALISIB
     Indication: Chronic lymphocytic leukaemia
     Route: 065
     Dates: start: 2020
  12. RITUXIMAB [Suspect]
     Active Substance: RITUXIMAB
     Route: 065
     Dates: start: 2012
  13. RITUXIMAB [Suspect]
     Active Substance: RITUXIMAB
     Route: 065
     Dates: start: 2020
  14. RITUXIMAB [Suspect]
     Active Substance: RITUXIMAB
     Indication: Chronic lymphocytic leukaemia
     Route: 065
     Dates: start: 2006
  15. RITUXIMAB [Suspect]
     Active Substance: RITUXIMAB
     Route: 065
     Dates: start: 2010
  16. VENETOCLAX [Suspect]
     Active Substance: VENETOCLAX
     Indication: Chronic lymphocytic leukaemia
     Route: 065
     Dates: start: 2017, end: 2020
  17. ZANUBRUTINIB [Suspect]
     Active Substance: ZANUBRUTINIB
     Indication: Chronic lymphocytic leukaemia
     Route: 065
     Dates: start: 202005
  18. CEFTRIAXONE [Concomitant]
     Active Substance: CEFTRIAXONE
     Indication: Evidence based treatment
     Route: 065
     Dates: start: 2020, end: 2020
  19. DAPTOMYCIN [Concomitant]
     Active Substance: DAPTOMYCIN
     Indication: Evidence based treatment
     Route: 065
     Dates: start: 2020
  20. LEVOFLOXACIN [Concomitant]
     Active Substance: LEVOFLOXACIN
     Indication: Evidence based treatment
     Route: 065
     Dates: start: 2020, end: 2020
  21. MEROPENEM [Concomitant]
     Active Substance: MEROPENEM
     Indication: Evidence based treatment
     Route: 065
     Dates: start: 2020

REACTIONS (1)
  - Drug ineffective [Fatal]

NARRATIVE: CASE EVENT DATE: 20200101
